FAERS Safety Report 7339710-5 (Version None)
Quarter: 2011Q1

REPORT INFORMATION
  Report Type: 
  Country: None (occurrence: None)
  Receive Date: 20110309
  Receipt Date: 20110228
  Transmission Date: 20110831
  Serious: Yes (Other)
  Sender: FDA-Public Use
  Company Number: US-ELI_LILLY_AND_COMPANY-US201103000121

PATIENT
  Sex: Female

DRUGS (12)
  1. BYETTA [Suspect]
     Dosage: 10 UG, 2/D
     Route: 058
  2. FUROSEMIDE [Concomitant]
     Indication: SWELLING
     Dosage: UNK, AS NEEDED
  3. VITAMIN D [Concomitant]
     Dosage: 50000 IU, UNK
  4. XANAX [Concomitant]
     Dosage: UNK, AS NEEDED
  5. BYETTA [Suspect]
     Dosage: 5 UG, 2/D
     Route: 058
  6. ENALAPRIL MALEATE [Concomitant]
     Indication: CARDIAC DISORDER
     Dosage: 5 MG, UNK
  7. TIZANIDINE [Concomitant]
     Dosage: UNK, AS NEEDED
  8. FOLIC ACID [Concomitant]
     Dosage: UNK, DAILY (1/D)
  9. BYETTA [Suspect]
     Indication: TYPE 2 DIABETES MELLITUS
     Dosage: 5 UG, 2/D
     Route: 058
  10. BYETTA [Suspect]
     Dosage: 5 UG, 2/D
     Route: 058
  11. GLYBURIDE [Concomitant]
     Dosage: 5 MG, 2/D
  12. BENADRYL [Concomitant]
     Dosage: UNK, EACH EVENING

REACTIONS (16)
  - CONTUSION [None]
  - ASTHENIA [None]
  - FALL [None]
  - EYE HAEMORRHAGE [None]
  - DIZZINESS [None]
  - EYE SWELLING [None]
  - PAIN [None]
  - NAUSEA [None]
  - BLOOD GLUCOSE INCREASED [None]
  - PERIORBITAL HAEMATOMA [None]
  - DEVICE BREAKAGE [None]
  - BLOOD GLUCOSE DECREASED [None]
  - EYE INJURY [None]
  - LACERATION [None]
  - HEADACHE [None]
  - SKIN DISCOLOURATION [None]
